FAERS Safety Report 9774733 (Version 3)
Quarter: 2014Q1

REPORT INFORMATION
  Report Type: Spontaneous
  Country: JP (occurrence: JP)
  Receive Date: 20131220
  Receipt Date: 20140306
  Transmission Date: 20141002
  Serious: Yes (Life-Threatening)
  Sender: FDA-Public Use
  Company Number: JP-ELI_LILLY_AND_COMPANY-JP201311009490

PATIENT
  Age: 80 Year
  Sex: Female
  Weight: 44.3 kg

DRUGS (9)
  1. GEMZAR [Suspect]
     Indication: PANCREATIC CARCINOMA
     Dosage: 1400 MG, UNK
     Route: 042
     Dates: start: 20131023, end: 20131023
  2. GRANISETRON [Concomitant]
     Indication: PROPHYLAXIS
     Dosage: 3 MG, UNK
     Route: 042
     Dates: start: 20131023, end: 20131023
  3. DECADRON                           /00016002/ [Concomitant]
     Indication: PROPHYLAXIS
     Dosage: 6.6 MG, UNK
     Route: 042
     Dates: start: 20131023, end: 20131023
  4. RINDERON                           /00008501/ [Concomitant]
     Indication: PROPHYLAXIS
     Dosage: 1.0 MG, UNK
     Route: 048
     Dates: start: 20131018, end: 20131031
  5. PARIET [Concomitant]
     Indication: DYSPEPSIA
     Dosage: 10 MG, UNK
     Route: 048
     Dates: start: 20131022, end: 20131031
  6. PARIET [Concomitant]
     Indication: NAUSEA
  7. LIPITOR [Concomitant]
     Indication: HYPERLIPIDAEMIA
     Dosage: 10 MG, UNK
     Route: 048
     Dates: end: 20131022
  8. NEXIUM                             /01479302/ [Concomitant]
     Indication: PRODUCT USED FOR UNKNOWN INDICATION
     Dosage: 20 MG, UNK
     Route: 048
     Dates: end: 20131022
  9. GASMOTIN [Concomitant]
     Indication: PRODUCT USED FOR UNKNOWN INDICATION
     Dosage: 5 MG, UNK
     Route: 048
     Dates: end: 20131022

REACTIONS (1)
  - Toxic encephalopathy [Recovered/Resolved with Sequelae]
